FAERS Safety Report 20092015 (Version 4)
Quarter: 2022Q1

REPORT INFORMATION
  Report Type: Report from Study
  Country: US (occurrence: US)
  Receive Date: 20211119
  Receipt Date: 20220303
  Transmission Date: 20220423
  Serious: Yes (Other)
  Sender: FDA-Public Use
  Company Number: US-JAZZ-2021-US-020612

PATIENT
  Sex: Female

DRUGS (5)
  1. XYREM [Suspect]
     Active Substance: SODIUM OXYBATE
     Indication: Narcolepsy
     Dosage: 4.5 GRAM, BID
     Route: 048
     Dates: start: 201002, end: 201103
  2. XYREM [Suspect]
     Active Substance: SODIUM OXYBATE
     Indication: Cataplexy
     Dosage: 2.25 GRAM, BID
     Route: 048
     Dates: start: 202007, end: 202008
  3. XYREM [Suspect]
     Active Substance: SODIUM OXYBATE
     Dosage: 3 GRAM, BID
     Route: 048
     Dates: start: 202008, end: 202008
  4. XYREM [Suspect]
     Active Substance: SODIUM OXYBATE
     Dosage: 4.5 GRAM, BID
     Route: 048
     Dates: start: 202008
  5. ETODOLAC [Concomitant]
     Active Substance: ETODOLAC
     Indication: Product used for unknown indication

REACTIONS (3)
  - Cardiac flutter [Recovered/Resolved]
  - Atrial fibrillation [Recovered/Resolved]
  - Therapeutic procedure [Unknown]

NARRATIVE: CASE EVENT DATE: 20210101
